FAERS Safety Report 4636824-5 (Version None)
Quarter: 2005Q2

REPORT INFORMATION
  Report Type: 
  Country: None (occurrence: None)
  Receive Date: 20050414
  Receipt Date: 20050404
  Transmission Date: 20051028
  Serious: Yes (Other)
  Sender: FDA-Public Use
  Company Number: 2005018832

PATIENT
  Age: 63 Year
  Sex: Female
  Weight: 68.0396 kg

DRUGS (4)
  1. XALATAN [Suspect]
     Indication: OPEN ANGLE GLAUCOMA
     Dosage: OPHTHALMIC
     Route: 047
     Dates: start: 19970512, end: 20020404
  2. PREDNISOLONE [Concomitant]
  3. OFLOXACIN [Concomitant]
  4. TOBRADEX [Concomitant]

REACTIONS (6)
  - EPISTAXIS [None]
  - GROWTH OF EYELASHES [None]
  - IRIS HYPERPIGMENTATION [None]
  - MADAROSIS [None]
  - SINUS DISORDER [None]
  - SKIN DISCOLOURATION [None]
